FAERS Safety Report 9904901 (Version 1)
Quarter: 2013Q2

REPORT INFORMATION
  Report Type: Spontaneous
  Country: US (occurrence: None)
  Receive Date: 20130305
  Receipt Date: 20130305
  Transmission Date: 20140414
  Serious: No
  Sender: FDA-Public Use
  Company Number: 1000041361

PATIENT
  Age: 79 Year
  Sex: Male

DRUGS (11)
  1. DALIRESP [Suspect]
     Indication: CHRONIC OBSTRUCTIVE PULMONARY DISEASE
     Dosage: 500 MCG EVERY 3 DAYS (500 MCG, 1 IN 3 D), ORAL
     Route: 048
     Dates: start: 20121116
  2. DILTIAZEM (DILTIAZEM HYDORCHLORIDE) (DILTIAZEM HYDROCHLORIDE)? [Concomitant]
  3. DIGOXIN (DIGOXIN) (DIGOXIN) [Concomitant]
  4. PREDNISONE (PREDNISONE) (PREDNISONE) [Concomitant]
  5. ALBUTERL (ALBUTEROL) (ALBUTEROL) [Concomitant]
  6. DULERA (DULERA) (DULERA) [Concomitant]
  7. ASPIRIN (ACETYLSALICYLIC ACID) (ACETYLSALICYLIC ACID) [Concomitant]
  8. FUROSEMIDE) (FUROSEMIDE) (FUROSEMIDE) [Concomitant]
  9. POTASSIUM (POTASSIUM) (POTASSIUM) [Concomitant]
  10. MUCINEX (GUAIFENESIN) (GUAIFENESIN) [Concomitant]
  11. SPIRIVA (TIOTROPIUM BROMIDE) (TIOTROPIUM BROMIDE0 [Concomitant]

REACTIONS (2)
  - Arthralgia [None]
  - Paranasal sinus hypersecretion [None]
